FAERS Safety Report 13964217 (Version 1)
Quarter: 2017Q3

REPORT INFORMATION
  Report Type: Spontaneous
  Country: US (occurrence: KR)
  Receive Date: 20170913
  Receipt Date: 20170913
  Transmission Date: 20171128
  Serious: Yes (Hospitalization, Other)
  Sender: FDA-Public Use
  Company Number: US-SUNOVION-2017SUN004017

PATIENT
  Age: 53 Year
  Sex: Female
  Weight: 64 kg

DRUGS (15)
  1. CISATRACURIUM BESYLATE. [Suspect]
     Active Substance: CISATRACURIUM BESYLATE
     Indication: ANAESTHESIA
     Dosage: 6 MG, SINGLE
     Route: 042
     Dates: start: 20140911, end: 20140911
  2. PLACEBO [Suspect]
     Active Substance: UNSPECIFIED INGREDIENT
     Indication: MYELODYSPLASTIC SYNDROME
     Dosage: UNK
     Route: 048
     Dates: start: 20140630
  3. AZACITIDINE. [Suspect]
     Active Substance: AZACITIDINE
     Indication: MYELODYSPLASTIC SYNDROME
     Dosage: 75 MG/M2, CYCLICAL
     Route: 058
     Dates: start: 20140630
  4. FUROSEMIDE. [Suspect]
     Active Substance: FUROSEMIDE
     Indication: PROPHYLAXIS
     Dosage: 10 MG, SINGLE
     Route: 042
     Dates: start: 20140911, end: 20140911
  5. REMIFENTANIL HYDROCHLORIDE [Suspect]
     Active Substance: REMIFENTANIL HYDROCHLORIDE
     Indication: ANAESTHESIA
     Dosage: 1 MG, SINGLE
     Route: 042
     Dates: start: 20140911, end: 20140911
  6. ESMOLOL [Suspect]
     Active Substance: ESMOLOL HYDROCHLORIDE
     Indication: PROPHYLAXIS
     Dosage: 20 MG, SINGLE
     Route: 042
     Dates: start: 20140911, end: 20140911
  7. MIDAZOLAM [Suspect]
     Active Substance: MIDAZOLAM HYDROCHLORIDE
     Indication: ANAESTHESIA
     Dosage: 5 MG, SINGLE
     Route: 042
     Dates: start: 20140911, end: 20140911
  8. GLYCOPYRROLATE. [Suspect]
     Active Substance: GLYCOPYRROLATE
     Indication: ANAESTHESIA
     Dosage: 0.4 MG, SINGLE
     Route: 042
     Dates: start: 20140911, end: 20140911
  9. PLACEBO [Suspect]
     Active Substance: UNSPECIFIED INGREDIENT
     Indication: THROMBOCYTOPENIA
  10. ETOMIDATE. [Suspect]
     Active Substance: ETOMIDATE
     Indication: ANAESTHESIA
     Dosage: 12 MG, SINGLE
     Route: 042
     Dates: start: 20140911, end: 20140911
  11. PHENYLEPHRINE [Suspect]
     Active Substance: PHENYLEPHRINE\PHENYLEPHRINE HYDROCHLORIDE
     Indication: BLOOD PRESSURE MEASUREMENT
     Dosage: 0.13 MG, SINGLE
     Route: 042
     Dates: start: 20140911, end: 20140911
  12. ROCURONIUM BROMIDE. [Suspect]
     Active Substance: ROCURONIUM BROMIDE
     Indication: ANAESTHESIA
     Dosage: 50 MG, SINGLE
     Route: 042
     Dates: start: 20140911, end: 20140911
  13. NOREPINEPHRINE. [Suspect]
     Active Substance: NOREPINEPHRINE
     Indication: BLOOD PRESSURE MEASUREMENT
     Dosage: 10 MG, SINGLE
     Route: 042
     Dates: start: 20140911, end: 20140911
  14. HYDROMORPHONE [Suspect]
     Active Substance: HYDROMORPHONE
     Indication: PAIN PROPHYLAXIS
     Dosage: 0.8 MG, SINGLE
     Route: 042
     Dates: start: 20140911, end: 20140911
  15. PYRIDOSTIGMINE [Suspect]
     Active Substance: PYRIDOSTIGMINE
     Indication: PREMEDICATION
     Dosage: 3 DF, SINGLE AMPOULE
     Route: 042
     Dates: start: 20140911, end: 20140911

REACTIONS (1)
  - Appendicitis [Recovered/Resolved]

NARRATIVE: CASE EVENT DATE: 20140910
